FAERS Safety Report 12818979 (Version 1)
Quarter: 2016Q4

REPORT INFORMATION
  Report Type: Spontaneous
  Country: PE (occurrence: PE)
  Receive Date: 20161006
  Receipt Date: 20161006
  Transmission Date: 20170207
  Serious: Yes (Death, Hospitalization, Other)
  Sender: FDA-Public Use
  Company Number: PE-GLAXOSMITHKLINE-PE2016GSK144200

PATIENT
  Age: 95 Year
  Sex: Male

DRUGS (1)
  1. SERETIDE [Suspect]
     Active Substance: FLUTICASONE PROPIONATE\SALMETEROL XINAFOATE
     Indication: ASTHMA
     Dosage: 250 UNK, BID
     Route: 055
     Dates: start: 20121206

REACTIONS (3)
  - Gastric ulcer [Unknown]
  - Pneumonia [Fatal]
  - Back pain [Unknown]

NARRATIVE: CASE EVENT DATE: 201607
